FAERS Safety Report 14588358 (Version 1)
Quarter: 2018Q1

REPORT INFORMATION
  Report Type: Spontaneous
  Country: US (occurrence: US)
  Receive Date: 20180301
  Receipt Date: 20180301
  Transmission Date: 20180509
  Serious: Yes (Other)
  Sender: FDA-Public Use
  Company Number: None

PATIENT
  Age: 77 Year
  Sex: Male
  Weight: 77.11 kg

DRUGS (1)
  1. ATENOLOL 50MG [Suspect]
     Active Substance: ATENOLOL
     Indication: HYPERTENSION
     Dosage: DOSE 25MG OR 1/2 TABLET
     Route: 048
     Dates: start: 20171007, end: 20180219

REACTIONS (3)
  - Blood pressure increased [None]
  - Product measured potency issue [None]
  - Product substitution issue [None]
